FAERS Safety Report 21138616 (Version 1)
Quarter: 2022Q3

REPORT INFORMATION
  Report Type: Report from Study
  Country: US (occurrence: US)
  Receive Date: 20220727
  Receipt Date: 20220727
  Transmission Date: 20221027
  Serious: Yes (Hospitalization, Other)
  Sender: FDA-Public Use
  Company Number: US-BRISTOL-MYERS SQUIBB COMPANY-2022-076281

PATIENT
  Age: 71 Year
  Sex: Male
  Weight: 68.3 kg

DRUGS (2)
  1. REVLIMID [Suspect]
     Active Substance: LENALIDOMIDE
     Indication: Plasma cell myeloma in remission
     Route: 048
     Dates: end: 202204
  2. DEXAMETHASONE [Concomitant]
     Active Substance: DEXAMETHASONE

REACTIONS (8)
  - Hypotension [Unknown]
  - Rash [Unknown]
  - Pruritus [Unknown]
  - Decreased appetite [Unknown]
  - Full blood count decreased [Unknown]
  - Rib fracture [Unknown]
  - COVID-19 [Recovered/Resolved]
  - Off label use [Unknown]
